FAERS Safety Report 18230361 (Version 6)
Quarter: 2022Q1

REPORT INFORMATION
  Report Type: Spontaneous
  Country: FR (occurrence: FR)
  Receive Date: 20200904
  Receipt Date: 20220316
  Transmission Date: 20220423
  Serious: Yes (Other)
  Sender: FDA-Public Use
  Company Number: FR-AUROBINDO-AUR-APL-2020-046239

PATIENT
  Age: 44 Year
  Sex: Female

DRUGS (3)
  1. GABAPENTIN [Suspect]
     Active Substance: GABAPENTIN
     Indication: Neuropathy peripheral
     Dosage: 1100 MILLIGRAM, DAILY
     Route: 065
  2. KETAMINE [Concomitant]
     Active Substance: KETAMINE
     Indication: Neuropathy peripheral
     Dosage: EVERY 3 MONTHS,TRIMESTRAL
     Route: 065
  3. VENLAFAXINE [Concomitant]
     Active Substance: VENLAFAXINE HYDROCHLORIDE
     Indication: Neuropathy peripheral
     Dosage: UNK
     Route: 065

REACTIONS (10)
  - Platelet disorder [Recovered/Resolved]
  - Haemorrhage [Recovered/Resolved]
  - Platelet aggregation decreased [Recovered/Resolved]
  - Rectal haemorrhage [Recovered/Resolved]
  - Contusion [Recovered/Resolved]
  - Heavy menstrual bleeding [Recovered/Resolved]
  - Mouth haemorrhage [Recovered/Resolved]
  - Coagulopathy [Recovered/Resolved]
  - Intermenstrual bleeding [Recovered/Resolved]
  - Gingival bleeding [Recovered/Resolved]
